FAERS Safety Report 8032762-9 (Version None)
Quarter: 2012Q1

REPORT INFORMATION
  Report Type: 
  Country: None (occurrence: None)
  Receive Date: 20120110
  Receipt Date: 20120103
  Transmission Date: 20120608
  Serious: Yes (Hospitalization, Other)
  Sender: FDA-Public Use
  Company Number: CA-JNJFOC-20120101003

PATIENT
  Sex: Male
  Weight: 97 kg

DRUGS (1)
  1. REMICADE [Suspect]
     Indication: ANKYLOSING SPONDYLITIS
     Route: 042
     Dates: start: 20080101

REACTIONS (4)
  - PRESYNCOPE [None]
  - LOSS OF CONSCIOUSNESS [None]
  - CARPAL TUNNEL SYNDROME [None]
  - POSTOPERATIVE WOUND INFECTION [None]
